FAERS Safety Report 15390523 (Version 1)
Quarter: 2018Q3

REPORT INFORMATION
  Report Type: Spontaneous
  Country: US (occurrence: US)
  Receive Date: 20180909
  Receipt Date: 20180909
  Transmission Date: 20181010
  Serious: Yes (Other)
  Sender: FDA-Public Use
  Company Number: None

PATIENT
  Age: 60 Year
  Sex: Female
  Weight: 67.95 kg

DRUGS (2)
  1. FLUTICASONE PROPIONATE. [Suspect]
     Active Substance: FLUTICASONE PROPIONATE
     Indication: MULTIPLE ALLERGIES
     Dosage: ?          QUANTITY:2 SPRAY(S);OTHER ROUTE:2 SPRAYS INTO EACH NOSTRIL?
     Dates: start: 20180201, end: 20180909
  2. ONE A DAY MULTIVITAMIN [Concomitant]

REACTIONS (3)
  - Frustration tolerance decreased [None]
  - Rhinorrhoea [None]
  - Upper-airway cough syndrome [None]

NARRATIVE: CASE EVENT DATE: 20180801
